FAERS Safety Report 8613098-1 (Version None)
Quarter: 2012Q3

REPORT INFORMATION
  Report Type: 
  Country: None (occurrence: None)
  Receive Date: 20120822
  Receipt Date: 20120727
  Transmission Date: 20120928
  Serious: Yes (Death)
  Sender: FDA-Public Use
  Company Number: JP-MERCK-2012SP019156

PATIENT

DRUGS (15)
  1. TEMODAL [Suspect]
     Dosage: 200 MG/M2, ONCE
     Route: 041
     Dates: start: 20110815, end: 20110819
  2. XYLOCAINE [Concomitant]
     Dosage: DOSAGE IS UNCERTAIN DURING A DAY.
     Route: 041
     Dates: start: 20110704, end: 20110907
  3. DIAZEPAM [Concomitant]
     Dosage: DOSAGE IS UNCERTAIN DURING A DAY.
     Route: 041
     Dates: start: 20110624, end: 20110907
  4. KETALAR [Concomitant]
     Dosage: DOSAGE IS UNCERTAIN DURING A DAY.
     Route: 041
     Dates: start: 20110704, end: 20110907
  5. TIENAM IV [Concomitant]
     Indication: PROPHYLAXIS
     Dosage: DOSAGE IS UNCERTAIN DURING A DAY.
     Route: 041
     Dates: start: 20110707, end: 20110711
  6. VANCOMYCIN [Concomitant]
     Indication: PROPHYLAXIS
     Dosage: DOSAGE IS UNCERTAIN DURING A DAY.
     Route: 041
     Dates: start: 20110708, end: 20110711
  7. TEMODAL [Suspect]
     Route: 048
  8. TEMODAL [Suspect]
     Route: 041
     Dates: start: 20110704, end: 20110708
  9. TEMODAL [Suspect]
     Dosage: 200 MG/M2, ONCE
     Route: 041
     Dates: start: 20110725, end: 20110729
  10. MORPHINE HCL ELIXIR [Concomitant]
     Route: 041
     Dates: end: 20110907
  11. TEMODAL [Suspect]
     Dosage: 200 MG/M2, QD
     Route: 041
     Dates: start: 20110704, end: 20110819
  12. TEMODAL [Suspect]
     Dosage: DOSAGE IS UNCERTAIN DURING A DAY.
     Route: 048
     Dates: start: 20101206, end: 20110428
  13. DIAZEPAM [Concomitant]
     Indication: PROPHYLAXIS
     Route: 041
     Dates: end: 20110907
  14. FENTANYL-100 [Concomitant]
     Dosage: DOSAGE IS UNCERTAIN DURING A DAY.
     Route: 062
     Dates: start: 20110623, end: 20110708
  15. MORPHINE [Concomitant]
     Dosage: DOSAGE IS UNCERTAIN DURING A DAY.
     Route: 041
     Dates: start: 20110624, end: 20110907

REACTIONS (10)
  - RENAL IMPAIRMENT [None]
  - HYPERKALAEMIA [None]
  - BLOOD LACTATE DEHYDROGENASE INCREASED [None]
  - HYPONATRAEMIA [None]
  - GAMMA-GLUTAMYLTRANSFERASE INCREASED [None]
  - ASPARTATE AMINOTRANSFERASE INCREASED [None]
  - ALANINE AMINOTRANSFERASE INCREASED [None]
  - C-REACTIVE PROTEIN INCREASED [None]
  - PULMONARY EMBOLISM [None]
  - HYPERBILIRUBINAEMIA [None]
